FAERS Safety Report 12128876 (Version 3)
Quarter: 2016Q2

REPORT INFORMATION
  Report Type: Other
  Country: US (occurrence: US)
  Receive Date: 20160229
  Receipt Date: 20160519
  Transmission Date: 20160815
  Serious: Yes (Other)
  Sender: FDA-Public Use
  Company Number: US-ACORDA-ACO_119262_2015

PATIENT
  Age: 81 Year
  Sex: Female
  Weight: 77.98 kg

DRUGS (13)
  1. CRESTOR [Concomitant]
     Active Substance: ROSUVASTATIN CALCIUM
     Indication: PRODUCT USED FOR UNKNOWN INDICATION
     Dosage: 2.5 MG, QOD
     Route: 048
  2. VITAMIN D3 [Concomitant]
     Active Substance: CHOLECALCIFEROL
     Indication: PRODUCT USED FOR UNKNOWN INDICATION
     Dosage: UNK
  3. VITAMIN D2 [Concomitant]
     Active Substance: ERGOCALCIFEROL
     Indication: PRODUCT USED FOR UNKNOWN INDICATION
     Dosage: 50000 UNK, WEEKLY
     Route: 048
  4. FUROSEMIDE. [Concomitant]
     Active Substance: FUROSEMIDE
     Indication: PRODUCT USED FOR UNKNOWN INDICATION
     Dosage: 20 MG, QD
     Route: 048
  5. AMPYRA [Suspect]
     Active Substance: DALFAMPRIDINE
     Indication: MULTIPLE SCLEROSIS
     Dosage: 10 MG, BID
     Route: 048
     Dates: start: 20151030, end: 20151030
  6. CULTURELLE [Concomitant]
     Active Substance: LACTOBACILLUS RHAMNOSUS
     Indication: PRODUCT USED FOR UNKNOWN INDICATION
  7. ESCITALOPRAM [Concomitant]
     Active Substance: ESCITALOPRAM OXALATE
     Indication: PRODUCT USED FOR UNKNOWN INDICATION
     Dosage: 10 MG, QD
     Route: 048
  8. SYNTHROID [Concomitant]
     Active Substance: LEVOTHYROXINE SODIUM
     Indication: PRODUCT USED FOR UNKNOWN INDICATION
     Dosage: 25 ?G, QD
     Route: 048
  9. LEXAPRO [Concomitant]
     Active Substance: ESCITALOPRAM OXALATE
     Indication: PRODUCT USED FOR UNKNOWN INDICATION
     Dosage: UNK
  10. CITRACAL [Concomitant]
     Active Substance: CALCIUM CITRATE
     Indication: PRODUCT USED FOR UNKNOWN INDICATION
  11. AMPYRA [Suspect]
     Active Substance: DALFAMPRIDINE
     Dosage: UNK
     Route: 065
     Dates: start: 20151201, end: 20151229
  12. ASPIRIN. [Concomitant]
     Active Substance: ASPIRIN
     Indication: PRODUCT USED FOR UNKNOWN INDICATION
     Dosage: 81 MG
  13. VITAMIN B12 [Concomitant]
     Active Substance: CYANOCOBALAMIN
     Indication: PRODUCT USED FOR UNKNOWN INDICATION
     Dosage: 1000 ?G, MONTHLY
     Route: 030

REACTIONS (15)
  - Diarrhoea [Recovered/Resolved]
  - Nausea [Unknown]
  - Hallucination [Recovered/Resolved]
  - Peripheral coldness [Recovered/Resolved]
  - Muscle tightness [Recovered/Resolved]
  - Drug ineffective [Unknown]
  - Insomnia [Recovered/Resolved]
  - Feeling jittery [Recovered/Resolved]
  - Decreased appetite [Unknown]
  - Oral herpes [Unknown]
  - Depressed level of consciousness [Unknown]
  - Dizziness [Recovered/Resolved]
  - Dehydration [Recovered/Resolved]
  - Fine motor skill dysfunction [Unknown]
  - Tremor [Recovered/Resolved]

NARRATIVE: CASE EVENT DATE: 201510
